FAERS Safety Report 5970895-9 (Version None)
Quarter: 2008Q4

REPORT INFORMATION
  Report Type: 
  Country: None (occurrence: None)
  Receive Date: 20081128
  Receipt Date: 20081117
  Transmission Date: 20090506
  Serious: Yes (Other)
  Sender: FDA-Public Use
  Company Number: PHHY2008FR29276

PATIENT
  Age: 85 Year
  Sex: Female

DRUGS (3)
  1. FRACTAL [Suspect]
     Dosage: 80MG, UNK
  2. NEXIUM [Suspect]
     Dosage: 40MG, UNK
  3. ALDALIX [Concomitant]

REACTIONS (1)
  - CONFUSIONAL STATE [None]
